FAERS Safety Report 6448605-0 (Version None)
Quarter: 2009Q4

REPORT INFORMATION
  Report Type: 
  Country: None (occurrence: None)
  Receive Date: 20091120
  Receipt Date: 20091110
  Transmission Date: 20100525
  Serious: Yes (Other)
  Sender: FDA-Public Use
  Company Number: JP-PFIZER INC-2009289620

PATIENT
  Age: 33 Year
  Sex: Male

DRUGS (4)
  1. GABAPENTIN [Suspect]
     Indication: EPILEPSY
     Dosage: 600 MG, 1X/DAY
     Route: 048
     Dates: start: 20081211, end: 20090317
  2. EXCEGRAN [Concomitant]
     Dosage: UNK
     Route: 048
     Dates: start: 20051201, end: 20090423
  3. CLOBAZAM [Concomitant]
     Route: 048
  4. DEPAKENE [Concomitant]
     Dosage: UNK
     Route: 048
     Dates: start: 20050101, end: 20090702

REACTIONS (2)
  - DELUSION [None]
  - HALLUCINATION [None]
